FAERS Safety Report 5453255-9 (Version None)
Quarter: 2007Q3

REPORT INFORMATION
  Report Type: 
  Country: None (occurrence: None)
  Receive Date: 20070914
  Receipt Date: 20070904
  Transmission Date: 20080115
  Serious: Yes (Other)
  Sender: FDA-Public Use
  Company Number: CH-PFIZER INC-2007075179

PATIENT
  Age: 60 Year
  Sex: Female

DRUGS (1)
  1. DETRUSITOL SR [Suspect]
     Route: 048

REACTIONS (3)
  - ECZEMA [None]
  - SKIN DISORDER [None]
  - SKIN EXFOLIATION [None]
